FAERS Safety Report 10222523 (Version 1)
Quarter: 2014Q2

REPORT INFORMATION
  Report Type: Spontaneous
  Country: IT (occurrence: IT)
  Receive Date: 20140606
  Receipt Date: 20140606
  Transmission Date: 20141212
  Serious: Yes (Hospitalization)
  Sender: FDA-Public Use
  Company Number: IT-WATSON-2013-25423

PATIENT
  Age: 74 Year
  Sex: Female
  Weight: 70 kg

DRUGS (9)
  1. SERTRALINE [Suspect]
     Indication: DEPRESSION
     Route: 048
     Dates: start: 20130905, end: 20130908
  2. FLUSS 40 MG + 25 MG TABLET (SCHARPER SPA) (ATC C03EB01) [Suspect]
     Indication: MYOCARDIAL ISCHAEMIA
     Route: 048
     Dates: start: 20090101, end: 20130908
  3. GLUCOPHAGE [Concomitant]
     Indication: TYPE 2 DIABETES MELLITUS
     Route: 065
     Dates: start: 20130908
  4. HALCION [Concomitant]
     Indication: DEPRESSION
     Route: 065
     Dates: start: 20130908
  5. TENOMAX ASTUCCIO [Concomitant]
     Indication: MYOCARDIAL ISCHAEMIA
     Route: 065
     Dates: start: 20130908
  6. UNIPRIL 5 MG TABLET [Concomitant]
     Indication: HYPERTENSION
     Route: 065
     Dates: start: 20130908
  7. CARDURA 2 MG TABLET [Concomitant]
     Indication: HYPERTENSION
     Route: 065
     Dates: start: 20130908
  8. CARDIOASPIRIN [Concomitant]
     Indication: HYPERTENSIVE HEART DISEASE
     Route: 065
     Dates: start: 20130908
  9. MEDIPO [Concomitant]
     Indication: DYSLIPIDAEMIA
     Route: 065
     Dates: start: 20130908

REACTIONS (3)
  - Asthenia [Unknown]
  - Hyponatraemia [Unknown]
  - Decreased appetite [Unknown]
